FAERS Safety Report 8625060-3 (Version None)
Quarter: 2012Q3

REPORT INFORMATION
  Report Type: 
  Country: None (occurrence: None)
  Receive Date: 20120827
  Receipt Date: 20120821
  Transmission Date: 20120928
  Serious: Yes (Other)
  Sender: FDA-Public Use
  Company Number: GB-PFIZER INC-2012204227

PATIENT
  Age: 53 Year
  Sex: Male
  Weight: 72 kg

DRUGS (8)
  1. ACETYLSALICYLIC ACID [Concomitant]
     Route: 048
     Dates: start: 20120718
  2. CETIRIZINE [Concomitant]
     Route: 048
     Dates: start: 20120718
  3. TERBINAFINE HYDROCHLORIDE [Concomitant]
     Route: 061
     Dates: start: 20120718
  4. PERINDOPRIL [Concomitant]
  5. BISOPROLOL [Concomitant]
     Route: 048
     Dates: start: 20120718
  6. PROCHLORPERAZINE MALEATE [Concomitant]
     Dates: start: 20120723
  7. RAMIPRIL [Suspect]
     Dates: start: 20120718
  8. ATORVASTATIN [Concomitant]
     Route: 048

REACTIONS (5)
  - CHEST PAIN [None]
  - NECK PAIN [None]
  - MUSCULOSKELETAL PAIN [None]
  - PRODUCT SUBSTITUTION ISSUE [None]
  - VERTIGO [None]
